FAERS Safety Report 24785129 (Version 1)
Quarter: 2024Q4

REPORT INFORMATION
  Report Type: Spontaneous
  Country: US (occurrence: None)
  Receive Date: 20241227
  Receipt Date: 20241227
  Transmission Date: 20250114
  Serious: No
  Sender: Public
  Company Number: None

PATIENT
  Age: 76 Year
  Sex: Male
  Weight: 63.96 kg

DRUGS (5)
  1. ATORVASTATIN CALCIUM [Suspect]
     Active Substance: ATORVASTATIN CALCIUM
     Indication: Low density lipoprotein increased
     Dosage: FREQUENCY : DAILY;?
     Route: 048
     Dates: start: 20240612
  2. COMPLETE MULTIVITAMIN/MULTIMINERAL ADULTS MEN 50+ [Concomitant]
  3. FISH OIL [Concomitant]
     Active Substance: FISH OIL
  4. VITAMIN D3 [Concomitant]
     Active Substance: CHOLECALCIFEROL
  5. TRIPLE MG [Concomitant]

REACTIONS (10)
  - Myalgia [None]
  - Groin pain [None]
  - Gait inability [None]
  - Musculoskeletal disorder [None]
  - Inadequate analgesia [None]
  - Vaccine interaction [None]
  - Injection site hypoaesthesia [None]
  - Injection site pruritus [None]
  - Feeling hot [None]
  - Tenderness [None]

NARRATIVE: CASE EVENT DATE: 20240627
